FAERS Safety Report 6444979-5 (Version None)
Quarter: 2009Q4

REPORT INFORMATION
  Report Type: 
  Country: None (occurrence: None)
  Receive Date: 20091117
  Receipt Date: 20091117
  Transmission Date: 20100525
  Serious: No
  Sender: FDA-Public Use
  Company Number: None

PATIENT
  Sex: Female
  Weight: 59 kg

DRUGS (2)
  1. CARBOPLATIN [Suspect]
     Dosage: 680 MG
  2. TAXOL [Suspect]
     Dosage: 285 MG

REACTIONS (8)
  - ABDOMINAL PAIN [None]
  - ASTHENIA [None]
  - CARBOHYDRATE ANTIGEN 125 INCREASED [None]
  - DEHYDRATION [None]
  - FALL [None]
  - FATIGUE [None]
  - LOSS OF CONSCIOUSNESS [None]
  - SYNCOPE [None]
